FAERS Safety Report 22072856 (Version 2)
Quarter: 2023Q2

REPORT INFORMATION
  Report Type: Report from Study
  Country: US (occurrence: US)
  Receive Date: 20230308
  Receipt Date: 20230420
  Transmission Date: 20230721
  Serious: Yes (Hospitalization)
  Sender: FDA-Public Use
  Company Number: US-BIOVITRUM-2023US00768

PATIENT
  Age: 56 Year
  Sex: Male

DRUGS (1)
  1. DOPTELET [Suspect]
     Active Substance: AVATROMBOPAG MALEATE
     Indication: Immune thrombocytopenia
     Dosage: DAILY
     Route: 048
     Dates: start: 20221223

REACTIONS (8)
  - Platelet count decreased [Unknown]
  - Nausea [Recovered/Resolved]
  - Product dose omission issue [Unknown]
  - Injection site bruising [Unknown]
  - Feeling abnormal [Unknown]
  - Sensory processing sensitivity [Unknown]
  - Inappropriate schedule of product administration [Unknown]
  - Arthralgia [Unknown]
